FAERS Safety Report 10083119 (Version 1)
Quarter: 2014Q2

REPORT INFORMATION
  Report Type: Spontaneous
  Country: US (occurrence: US)
  Receive Date: 20140417
  Receipt Date: 20140417
  Transmission Date: 20141212
  Serious: Yes (Other)
  Sender: FDA-Public Use
  Company Number: US-BIOGENIDEC-2014BI034588

PATIENT
  Sex: Female
  Weight: 85 kg

DRUGS (18)
  1. AVONEX [Suspect]
     Indication: RELAPSING-REMITTING MULTIPLE SCLEROSIS
     Route: 030
  2. FUROSEMIDE [Concomitant]
     Indication: LOCAL SWELLING
  3. ACETAMINOPHEN [Concomitant]
     Route: 048
  4. AMLODIPINE [Concomitant]
     Route: 048
  5. ASPIRIN [Concomitant]
     Route: 048
  6. CARVEDILOL [Concomitant]
     Route: 048
  7. CYCLOBENZAPRINE [Concomitant]
     Route: 048
  8. GLYBURIDE [Concomitant]
     Route: 048
  9. NORCO [Concomitant]
  10. ANAPROX [Concomitant]
     Route: 048
  11. NITROSTAT [Concomitant]
     Route: 060
  12. BENICAR HCT [Concomitant]
     Route: 048
  13. PRILOSEC [Concomitant]
     Route: 048
  14. OYSTER SHELL CALCIUM [Concomitant]
     Indication: OSTEOPOROSIS PROPHYLAXIS
  15. MICRO-K [Concomitant]
  16. K-DUR [Concomitant]
  17. SIMVASTATIN [Concomitant]
     Route: 048
  18. LEVOTHYROXINE [Concomitant]

REACTIONS (15)
  - Renal failure chronic [Not Recovered/Not Resolved]
  - Hypertension [Unknown]
  - Type 2 diabetes mellitus [Unknown]
  - Exostosis of external ear canal [Unknown]
  - Coronary artery disease [Unknown]
  - Gastrooesophageal reflux disease [Unknown]
  - Hyperlipidaemia [Unknown]
  - Oedema peripheral [Unknown]
  - Sensation of foreign body [Unknown]
  - Dysphagia [Unknown]
  - Drug eruption [Not Recovered/Not Resolved]
  - Pain [Unknown]
  - Insomnia [Unknown]
  - Hypothyroidism [Unknown]
  - Microcytic anaemia [Unknown]
